FAERS Safety Report 12837823 (Version 3)
Quarter: 2016Q4

REPORT INFORMATION
  Report Type: Spontaneous
  Country: US (occurrence: US)
  Receive Date: 20161012
  Receipt Date: 20161109
  Transmission Date: 20170207
  Serious: Yes (Other)
  Sender: FDA-Public Use
  Company Number: US-009507513-1610USA002023

PATIENT
  Age: 47 Year
  Sex: Female
  Weight: 68.03 kg

DRUGS (5)
  1. IBUPROFEN. [Concomitant]
     Active Substance: IBUPROFEN
     Dosage: UNK
  2. ATIVAN [Concomitant]
     Active Substance: LORAZEPAM
     Dosage: UNK
  3. BENADRYL [Concomitant]
     Active Substance: DIPHENHYDRAMINE HYDROCHLORIDE
     Dosage: UNK
  4. BELSOMRA [Suspect]
     Active Substance: SUVOREXANT
     Indication: INSOMNIA
     Dosage: 10 MG, UNK
     Route: 048
     Dates: start: 20160923
  5. BELSOMRA [Suspect]
     Active Substance: SUVOREXANT
     Dosage: 10 MG, UNK
     Route: 048
     Dates: start: 20160929, end: 20160929

REACTIONS (12)
  - Generalised erythema [Unknown]
  - Salivary hypersecretion [Unknown]
  - Seizure [Unknown]
  - Palmar erythema [Unknown]
  - Swelling face [Unknown]
  - Tremor [Unknown]
  - Lip swelling [Unknown]
  - Abdominal pain [Unknown]
  - Nausea [Unknown]
  - Rash generalised [Unknown]
  - Burning sensation [Unknown]
  - Genital pain [Unknown]

NARRATIVE: CASE EVENT DATE: 20160929
